FAERS Safety Report 7706767-9 (Version None)
Quarter: 2011Q3

REPORT INFORMATION
  Report Type: 
  Country: None (occurrence: None)
  Receive Date: 20110818
  Receipt Date: 20110811
  Transmission Date: 20111222
  Serious: Yes (Hospitalization, Other)
  Sender: FDA-Public Use
  Company Number: 2011SP034081

PATIENT
  Sex: Male

DRUGS (9)
  1. MOTILIUM [Concomitant]
  2. FLUTICASONE PROPIONATE [Concomitant]
  3. PULMICORT [Concomitant]
  4. TEMODAL [Suspect]
     Indication: GLIOBLASTOMA MULTIFORME
     Dosage: 300 MG, PO
     Route: 048
     Dates: start: 20110526
  5. ZOFRAN [Concomitant]
  6. KEPPRA [Concomitant]
  7. RHINOCORT [Concomitant]
  8. MYCOSTATIN [Concomitant]
  9. ESOMEPRAZOLE SODIUM [Concomitant]

REACTIONS (5)
  - NEURALGIA [None]
  - EAR INFECTION [None]
  - APHASIA [None]
  - CONVULSION [None]
  - HERPES ZOSTER [None]
